FAERS Safety Report 20892140 (Version 1)
Quarter: 2022Q2

REPORT INFORMATION
  Report Type: Spontaneous
  Country: US (occurrence: US)
  Receive Date: 20220530
  Receipt Date: 20220530
  Transmission Date: 20220721
  Serious: No
  Sender: FDA-Public Use
  Company Number: US-KARYOPHARM-2022KPT000525

PATIENT

DRUGS (21)
  1. XPOVIO [Suspect]
     Active Substance: SELINEXOR
     Indication: Plasma cell myeloma
     Dosage: 100 MG, WEEKLY
     Route: 048
     Dates: start: 20220430
  2. ACYCLOVIR [Concomitant]
     Active Substance: ACYCLOVIR
  3. ATORVASTATIN [Concomitant]
     Active Substance: ATORVASTATIN
  4. BRIMONIDINE [Concomitant]
     Active Substance: BRIMONIDINE TARTRATE
  5. CABERGOLINE [Concomitant]
     Active Substance: CABERGOLINE
  6. DEXAMETHASONE [Concomitant]
     Active Substance: DEXAMETHASONE
  7. DORZOLAMIDE [Concomitant]
     Active Substance: DORZOLAMIDE
  8. FLUTICASONE [Concomitant]
     Active Substance: FLUTICASONE
  9. GABAPENTIN [Concomitant]
     Active Substance: GABAPENTIN
  10. HYDROXYZINE [Concomitant]
     Active Substance: HYDROXYZINE HYDROCHLORIDE
  11. LANSOPRAZOLE [Concomitant]
     Active Substance: LANSOPRAZOLE
  12. MECLIZINE HYDROCHLORIDE [Concomitant]
     Active Substance: MECLIZINE HYDROCHLORIDE
  13. NORCO [Concomitant]
     Active Substance: ACETAMINOPHEN\HYDROCODONE BITARTRATE
  14. ONDANSETRON [Concomitant]
     Active Substance: ONDANSETRON
  15. POTASSIUM CHLORIDE [Concomitant]
     Active Substance: POTASSIUM CHLORIDE
  16. PREDNISONE [Concomitant]
     Active Substance: PREDNISONE
  17. SERTRALINE [Concomitant]
     Active Substance: SERTRALINE HYDROCHLORIDE
  18. TAMSULOSIN [Concomitant]
     Active Substance: TAMSULOSIN
  19. TIMOLOL [Concomitant]
     Active Substance: TIMOLOL
  20. WARFARIN [Concomitant]
     Active Substance: WARFARIN
  21. NYSTATIN [Concomitant]
     Active Substance: NYSTATIN

REACTIONS (4)
  - Nausea [Not Recovered/Not Resolved]
  - Vomiting [Not Recovered/Not Resolved]
  - Diarrhoea [Unknown]
  - Fatigue [Unknown]

NARRATIVE: CASE EVENT DATE: 20220101
